FAERS Safety Report 7509166-8 (Version None)
Quarter: 2011Q2

REPORT INFORMATION
  Report Type: 
  Country: None (occurrence: None)
  Receive Date: 20110527
  Receipt Date: 20091120
  Transmission Date: 20111010
  Serious: Yes (Other)
  Sender: FDA-Public Use
  Company Number: US-BAYER-200940901NA

PATIENT
  Age: 64 Year
  Sex: Female
  Weight: 65.76 kg

DRUGS (27)
  1. TRASYLOL [Suspect]
     Indication: AORTIC VALVE REPLACEMENT
     Dosage: 200 ML (LOADING DOSE), UNK
     Route: 042
     Dates: start: 20060125, end: 20060125
  2. TRASYLOL [Suspect]
     Indication: AORTIC VALVE REPAIR
     Dosage: 402 ML, UNK
     Route: 042
     Dates: start: 20060125, end: 20060125
  3. COUMADIN [Concomitant]
     Indication: PRODUCT USED FOR UNKNOWN INDICATION
  4. CEFAZOLIN [Concomitant]
     Indication: PRODUCT USED FOR UNKNOWN INDICATION
     Dosage: 2 G, UNK
     Route: 042
     Dates: start: 20060125, end: 20060125
  5. MIDAZOLAM HCL [Concomitant]
     Indication: PRODUCT USED FOR UNKNOWN INDICATION
     Dosage: 15 MG, UNK
     Route: 042
     Dates: start: 20060125, end: 20060125
  6. TRASYLOL [Suspect]
     Indication: MITRAL VALVE REPAIR
     Dosage: 2 ML (INITIAL DOSE), UNK
     Route: 042
     Dates: start: 20060125, end: 20060125
  7. FENTANYL [Concomitant]
     Indication: PRODUCT USED FOR UNKNOWN INDICATION
     Dosage: 1250 MCG
     Route: 042
     Dates: start: 20060125, end: 20060125
  8. SYNTHROID [Concomitant]
     Indication: PRODUCT USED FOR UNKNOWN INDICATION
     Dosage: UNK
  9. FUROSEMIDE [Concomitant]
     Indication: PRODUCT USED FOR UNKNOWN INDICATION
     Dosage: 40 MG, UNK
     Route: 042
     Dates: start: 20060125, end: 20060125
  10. LIDOCAINE [Concomitant]
     Indication: PRODUCT USED FOR UNKNOWN INDICATION
     Dosage: UNK
     Route: 042
     Dates: start: 20060125, end: 20060125
  11. TRASYLOL [Suspect]
     Indication: CARDIAC OPERATION
  12. RED BLOOD CELLS [Concomitant]
     Indication: PRODUCT USED FOR UNKNOWN INDICATION
     Dosage: 1 U, UNK
     Route: 042
  13. INS [INSULIN] [Concomitant]
     Indication: PRODUCT USED FOR UNKNOWN INDICATION
     Dosage: 19.33 U, UNK
     Route: 042
     Dates: start: 20060125, end: 20060125
  14. DOBUTAMINE HYDROCHLORIDE [Concomitant]
     Indication: PRODUCT USED FOR UNKNOWN INDICATION
     Dosage: UNK
     Route: 042
     Dates: start: 20060125
  15. NOREPINEPHRINE BITARTRATE [Concomitant]
     Indication: PRODUCT USED FOR UNKNOWN INDICATION
     Dosage: UNK
     Route: 042
     Dates: start: 20060125
  16. PLASMA [Concomitant]
     Indication: PRODUCT USED FOR UNKNOWN INDICATION
     Dosage: 1 U, UNK
     Route: 042
  17. PLATELETS [Concomitant]
     Indication: PRODUCT USED FOR UNKNOWN INDICATION
     Dosage: 1 U, UNK
     Route: 042
  18. HEPARIN [Concomitant]
     Indication: PRODUCT USED FOR UNKNOWN INDICATION
     Dosage: 24000 U, UNK
     Route: 042
     Dates: start: 20060125, end: 20060125
  19. CALCIUM CHLORIDE [Concomitant]
     Indication: PRODUCT USED FOR UNKNOWN INDICATION
     Dosage: 1 G, UNK
     Route: 042
     Dates: start: 20060125, end: 20060125
  20. PROTAMINE SULFATE [Concomitant]
     Indication: PRODUCT USED FOR UNKNOWN INDICATION
     Dosage: 350 MG, UNK
     Route: 042
     Dates: start: 20060125, end: 20060125
  21. MAGNESIUM SULFATE [Concomitant]
     Indication: PRODUCT USED FOR UNKNOWN INDICATION
     Dosage: 350 MG, UNK
     Route: 042
     Dates: start: 20060125, end: 20060125
  22. DESMOPRESSIN ACETATE [Concomitant]
     Indication: PRODUCT USED FOR UNKNOWN INDICATION
     Dosage: 20 MCG, UNK
     Route: 042
     Dates: start: 20060125, end: 20060125
  23. SODIUM BICARBONATE [Concomitant]
     Indication: PRODUCT USED FOR UNKNOWN INDICATION
     Dosage: 50 MEQ, UNK
     Route: 042
     Dates: start: 20060125, end: 20060125
  24. TRASYLOL [Suspect]
     Indication: TRICUSPID VALVE REPAIR
     Dosage: 50 ML (LOADING DOSE), Q1HR
     Route: 042
     Dates: start: 20060125, end: 20060125
  25. LASIX [Concomitant]
     Indication: PRODUCT USED FOR UNKNOWN INDICATION
     Dosage: UNK
  26. PANCURONIUM BROMIDE [Concomitant]
     Indication: PRODUCT USED FOR UNKNOWN INDICATION
     Dosage: 14 MG, UNK
     Route: 042
     Dates: start: 20060125, end: 20060125
  27. SCOPOLAMINE [Concomitant]
     Indication: PRODUCT USED FOR UNKNOWN INDICATION
     Dosage: UNK
     Route: 042
     Dates: start: 20060125, end: 20060125

REACTIONS (12)
  - MULTI-ORGAN FAILURE [None]
  - PSYCHIATRIC SYMPTOM [None]
  - FEAR [None]
  - UNEVALUABLE EVENT [None]
  - INJURY [None]
  - ANXIETY [None]
  - ANHEDONIA [None]
  - RENAL FAILURE [None]
  - DEPRESSION [None]
  - PAIN [None]
  - RENAL INJURY [None]
  - DISABILITY [None]
